FAERS Safety Report 6237295-8 (Version None)
Quarter: 2009Q2

REPORT INFORMATION
  Report Type: 
  Country: None (occurrence: None)
  Receive Date: 20090619
  Receipt Date: 20090609
  Transmission Date: 20091009
  Serious: Yes (Disabling, Other)
  Sender: FDA-Public Use
  Company Number: AU-PFIZER INC-2009216187

PATIENT
  Age: 23 Year

DRUGS (2)
  1. CHAMPIX [Suspect]
     Indication: SMOKING CESSATION THERAPY
     Dosage: 1 MG, 2X/DAY
     Route: 048
  2. CHAMPIX [Suspect]
     Dosage: 0.5 MG, 2X/DAY
     Route: 048

REACTIONS (9)
  - ANXIETY [None]
  - DISORIENTATION [None]
  - DIZZINESS [None]
  - FEELING ABNORMAL [None]
  - HALLUCINATION [None]
  - HYPERHIDROSIS [None]
  - NAUSEA [None]
  - NERVOUSNESS [None]
  - THINKING ABNORMAL [None]
